FAERS Safety Report 20073187 (Version 2)
Quarter: 2021Q4

REPORT INFORMATION
  Report Type: Report from Study
  Country: FR (occurrence: FR)
  Receive Date: 20211116
  Receipt Date: 20211217
  Transmission Date: 20220303
  Serious: Yes (Death, Other)
  Sender: FDA-Public Use
  Company Number: FR-GLAXOSMITHKLINE-FR2021EME233022

PATIENT
  Age: 21 Month
  Sex: Male
  Weight: 10 kg

DRUGS (2)
  1. ALBUTEROL SULFATE [Suspect]
     Active Substance: ALBUTEROL SULFATE
     Indication: Spinal muscular atrophy
     Dosage: 2MG/5ML
     Route: 048
     Dates: start: 20210723, end: 20210730
  2. ALBUTEROL SULFATE [Suspect]
     Active Substance: ALBUTEROL SULFATE
     Indication: Myasthenia gravis

REACTIONS (1)
  - Death [Fatal]

NARRATIVE: CASE EVENT DATE: 20210731
